FAERS Safety Report 21665425 (Version 1)
Quarter: 2022Q4

REPORT INFORMATION
  Report Type: Spontaneous
  Country: US (occurrence: US)
  Receive Date: 20221201
  Receipt Date: 20221201
  Transmission Date: 20230112
  Serious: No
  Sender: FDA-Public Use
  Company Number: US-APOTEX-2022AP014169

PATIENT
  Sex: Male

DRUGS (3)
  1. OMEPRAZOLE [Suspect]
     Active Substance: OMEPRAZOLE
     Indication: Gastrointestinal disorder
     Dosage: UNK
     Route: 065
  2. OMEPRAZOLE [Suspect]
     Active Substance: OMEPRAZOLE
     Indication: Diarrhoea
  3. ORGOVYX [Suspect]
     Active Substance: RELUGOLIX
     Indication: Prostate cancer
     Dosage: 1 DOSAGE FORM, QD
     Route: 048
     Dates: start: 20220216

REACTIONS (3)
  - Gastrointestinal disorder [Recovered/Resolved]
  - Incorrect dose administered [Recovered/Resolved]
  - Diarrhoea [Not Recovered/Not Resolved]
